FAERS Safety Report 7826446-7 (Version None)
Quarter: 2011Q4

REPORT INFORMATION
  Report Type: 
  Country: None (occurrence: None)
  Receive Date: 20111020
  Receipt Date: 20111019
  Transmission Date: 20120403
  Serious: Yes (Hospitalization, Other)
  Sender: FDA-Public Use
  Company Number: IL-BRISTOL-MYERS SQUIBB COMPANY-15714025

PATIENT
  Age: 68 Year
  Sex: Male

DRUGS (5)
  1. BLINDED: PLACEBO [Suspect]
     Indication: TYPE 2 DIABETES MELLITUS
     Dates: start: 20110202
  2. BLINDED: SAXAGLIPTIN [Suspect]
     Indication: TYPE 2 DIABETES MELLITUS
     Dosage: STOPPED ON 06APR2011
     Dates: start: 20110202
  3. HUMALOG [Suspect]
     Indication: DIABETES MELLITUS
     Dosage: LISPRO
  4. LANTUS [Suspect]
     Indication: DIABETES MELLITUS
  5. ASPIRIN [Concomitant]
     Dosage: 1 DF={100MG

REACTIONS (1)
  - PANCREATITIS [None]
